FAERS Safety Report 8069754-X (Version None)
Quarter: 2012Q1

REPORT INFORMATION
  Report Type: 
  Country: None (occurrence: None)
  Receive Date: 20120125
  Receipt Date: 20120125
  Transmission Date: 20120608
  Serious: Yes (Other)
  Sender: FDA-Public Use
  Company Number: None

PATIENT
  Age: 43 Year
  Sex: Male
  Weight: 149.68 kg

DRUGS (2)
  1. PAROXETINE [Concomitant]
  2. PAXIL [Suspect]
     Indication: ANXIETY
     Dosage: 40MG
     Route: 048
     Dates: start: 20000601, end: 20120124

REACTIONS (6)
  - MOOD SWINGS [None]
  - DRUG DEPENDENCE [None]
  - QUALITY OF LIFE DECREASED [None]
  - SLEEP TERROR [None]
  - SUICIDAL IDEATION [None]
  - DRUG WITHDRAWAL SYNDROME [None]
